FAERS Safety Report 12677650 (Version 1)
Quarter: 2016Q3

REPORT INFORMATION
  Report Type: Report from Study
  Country: BR (occurrence: BR)
  Receive Date: 20160823
  Receipt Date: 20160823
  Transmission Date: 20161109
  Serious: Yes (Other)
  Sender: FDA-Public Use
  Company Number: BR-JNJFOC-20160813273

PATIENT
  Age: 55 Year
  Sex: Female

DRUGS (3)
  1. REMICADE [Suspect]
     Active Substance: INFLIXIMAB
     Indication: RHEUMATOID ARTHRITIS
     Route: 042
     Dates: start: 20160601
  2. REMICADE [Suspect]
     Active Substance: INFLIXIMAB
     Indication: RHEUMATOID ARTHRITIS
     Route: 042
     Dates: start: 20160404
  3. REMICADE [Suspect]
     Active Substance: INFLIXIMAB
     Indication: RHEUMATOID ARTHRITIS
     Route: 042
     Dates: start: 201207

REACTIONS (9)
  - Tongue disorder [Unknown]
  - Aphasia [Unknown]
  - Infusion related reaction [Recovering/Resolving]
  - Dry throat [Recovering/Resolving]
  - Heart rate increased [Unknown]
  - Paraesthesia [Unknown]
  - Anxiety [Unknown]
  - Headache [Unknown]
  - Allergic cough [Recovering/Resolving]

NARRATIVE: CASE EVENT DATE: 201502
